FAERS Safety Report 6063203-9 (Version None)
Quarter: 2009Q1

REPORT INFORMATION
  Report Type: 
  Country: None (occurrence: None)
  Receive Date: 20090203
  Receipt Date: 20090122
  Transmission Date: 20090719
  Serious: Yes (Disabling)
  Sender: FDA-Public Use
  Company Number: NO-PFIZER INC-2009159219

PATIENT

DRUGS (3)
  1. NORVASC [Suspect]
     Indication: HYPERTENSION
     Dosage: 5 MG, 1X/DAY
     Route: 048
     Dates: start: 20011209, end: 20080930
  2. COAPROVEL [Suspect]
     Indication: HYPERTENSION
     Dosage: UNK
     Route: 048
     Dates: start: 20010617
  3. FLUTIDE NASAL [Concomitant]
     Indication: RHINITIS ALLERGIC
     Dosage: 50 UG, AS NEEDED
     Route: 045
     Dates: start: 19980122, end: 20070901

REACTIONS (1)
  - ANOSMIA [None]
